FAERS Safety Report 5137273-6 (Version None)
Quarter: 2006Q4

REPORT INFORMATION
  Report Type: 
  Country: None (occurrence: None)
  Receive Date: 20061030
  Receipt Date: 20051003
  Transmission Date: 20070319
  Serious: No
  Sender: FDA-Public Use
  Company Number: US-GLAXOSMITHKLINE-A0576724A

PATIENT
  Age: 14 Year
  Sex: Male

DRUGS (6)
  1. ADVAIR HFA [Suspect]
     Indication: DRUG USE FOR UNKNOWN INDICATION
     Dosage: 1BLS AS REQUIRED
     Route: 055
  2. ANTIBIOTICS [Concomitant]
     Route: 065
  3. REGLAN [Concomitant]
  4. ALLEGRA [Concomitant]
     Dosage: 180MG UNKNOWN
     Route: 065
  5. SPIRIVA [Concomitant]
     Route: 065
  6. PREVACID [Concomitant]

REACTIONS (5)
  - GLOSSITIS [None]
  - ODYNOPHAGIA [None]
  - PHARYNGEAL ERYTHEMA [None]
  - PHARYNGOLARYNGEAL PAIN [None]
  - VOMITING [None]
